FAERS Safety Report 8006623-5 (Version None)
Quarter: 2011Q4

REPORT INFORMATION
  Report Type: 
  Country: None (occurrence: None)
  Receive Date: 20111227
  Receipt Date: 20111027
  Transmission Date: 20120403
  Serious: No
  Sender: FDA-Public Use
  Company Number: US-BAYER-2011-104824

PATIENT
  Age: 50 Year
  Sex: Male

DRUGS (3)
  1. CIPROFLOXACIN [Suspect]
     Dosage: UNK, BID
     Dates: start: 20111005
  2. NORCO [Concomitant]
  3. DEGARELIX [Concomitant]

REACTIONS (1)
  - DIZZINESS [None]
